FAERS Safety Report 4974123-2 (Version None)
Quarter: 2006Q2

REPORT INFORMATION
  Report Type: 
  Country: None (occurrence: None)
  Receive Date: 20060417
  Receipt Date: 20060206
  Transmission Date: 20061013
  Serious: Yes (Hospitalization, Other)
  Sender: FDA-Public Use
  Company Number: US-MERCK-0602USA01451

PATIENT
  Sex: Female
  Weight: 66 kg

DRUGS (2)
  1. VIOXX [Suspect]
     Indication: MONARTHRITIS
     Route: 048
     Dates: start: 20010101, end: 20040101
  2. VIOXX [Suspect]
     Indication: PAIN IN EXTREMITY
     Route: 048
     Dates: start: 20010101, end: 20040101

REACTIONS (14)
  - ANXIETY [None]
  - ASTHENIA [None]
  - CARDIAC DISORDER [None]
  - CEREBROVASCULAR ACCIDENT [None]
  - CHEST PAIN [None]
  - COLON POLYPECTOMY [None]
  - DEPRESSION [None]
  - GALLBLADDER DISORDER [None]
  - INTESTINAL POLYP [None]
  - MYOCARDIAL INFARCTION [None]
  - PAIN [None]
  - PRESCRIBED OVERDOSE [None]
  - SKIN LACERATION [None]
  - SYNCOPE [None]
